FAERS Safety Report 17856554 (Version 2)
Quarter: 2020Q2

REPORT INFORMATION
  Report Type: Spontaneous
  Country: PT (occurrence: PT)
  Receive Date: 20200603
  Receipt Date: 20200616
  Transmission Date: 20200714
  Serious: Yes (Other)
  Sender: FDA-Public Use
  Company Number: PT-TEVA-2019-PT-1102294

PATIENT
  Age: 48 Year
  Sex: Female

DRUGS (12)
  1. CENTELLA ASIATICA [Suspect]
     Active Substance: CENTELLA ASIATICA WHOLE
     Indication: WEIGHT DECREASED
     Dosage: COMPOUNDED PREPARATION
     Route: 065
  2. TOPIRAMATE. [Suspect]
     Active Substance: TOPIRAMATE
     Indication: WEIGHT DECREASED
     Dosage: COMPOUNDED PREPARATION
     Route: 065
  3. SENNA [Suspect]
     Active Substance: SENNA LEAF\SENNOSIDES\SENNOSIDES A AND B
     Indication: WEIGHT DECREASED
     Dosage: COMPOUNDED PREPARATION
     Route: 065
  4. FUROSEMIDE. [Suspect]
     Active Substance: FUROSEMIDE
     Indication: WEIGHT DECREASED
     Dosage: COMPOUNDED PREPARATION
     Route: 065
  5. METFORMIN [Suspect]
     Active Substance: METFORMIN HYDROCHLORIDE
     Indication: WEIGHT DECREASED
     Dosage: COMPOUNDED PREPARATION
     Route: 065
  6. ETHINYLESTRADIOL/GESTODENE [Interacting]
     Active Substance: ETHINYL ESTRADIOL\GESTODENE
     Indication: CONTRACEPTION
     Dosage: 0.030MG/0.075MG, FIVE MONTHS PREVIOUSLY.
     Route: 048
  7. ORLISTAT. [Suspect]
     Active Substance: ORLISTAT
     Indication: WEIGHT DECREASED
     Dosage: COMPOUNDED PREPARATION
     Route: 065
  8. CHLORDIAZEPOXIDE. [Suspect]
     Active Substance: CHLORDIAZEPOXIDE
     Indication: WEIGHT DECREASED
     Dosage: COMPOUNDED PREPARATION
     Route: 065
  9. CHROMIUM PICOLINATE [Suspect]
     Active Substance: CHROMIUM PICOLINATE
     Indication: WEIGHT DECREASED
     Dosage: COMPOUNDED PREPARATION
     Route: 065
  10. BUPROPION. [Suspect]
     Active Substance: BUPROPION
     Indication: WEIGHT DECREASED
     Dosage: COMPOUNDED PREPARATION
     Route: 065
  11. CASCARA SAGRADA [Suspect]
     Active Substance: FRANGULA PURSHIANA BARK
     Indication: WEIGHT DECREASED
     Dosage: COMPOUNDED PREPARATION
     Route: 065
  12. PHENOLPHTHALEIN [Suspect]
     Active Substance: PHENOLPHTHALEIN
     Indication: WEIGHT DECREASED
     Dosage: COMPOUNDED PREPARATION
     Route: 065

REACTIONS (3)
  - Drug interaction [Unknown]
  - Cerebral venous thrombosis [Unknown]
  - Intentional product misuse [Unknown]
